FAERS Safety Report 5222090-9 (Version None)
Quarter: 2007Q1

REPORT INFORMATION
  Report Type: 
  Country: None (occurrence: None)
  Receive Date: 20070129
  Receipt Date: 20060710
  Transmission Date: 20070707
  Serious: Yes (Hospitalization)
  Sender: FDA-Public Use
  Company Number: US-GLAXOSMITHKLINE-A0608686A

PATIENT
  Age: 14 Year
  Sex: Female
  Weight: 50 kg

DRUGS (1)
  1. WELLBUTRIN [Suspect]
     Indication: ANXIETY

REACTIONS (3)
  - GRAND MAL CONVULSION [None]
  - INCONTINENCE [None]
  - POSTICTAL STATE [None]
